FAERS Safety Report 6979683-8 (Version None)
Quarter: 2010Q3

REPORT INFORMATION
  Report Type: 
  Country: None (occurrence: None)
  Receive Date: 20100908
  Receipt Date: 20100824
  Transmission Date: 20110219
  Serious: Yes (Death)
  Sender: FDA-Public Use
  Company Number: 1000015971

PATIENT
  Age: 33 Year
  Sex: Male

DRUGS (20)
  1. MILNACIPRAN (MILNACIPRAN HYDROCHLORIDE) (TABLETS) [Suspect]
     Indication: DEPRESSION
  2. METHYLEPHEDRINE [Suspect]
  3. DIHYDROCODEINE [Suspect]
  4. CLOTIAZEPAM [Suspect]
  5. CLOMIPRAMINE [Suspect]
  6. CHLORPROMAZINE [Suspect]
  7. PHENOBARBITAL [Suspect]
  8. PROMETHAZINE [Suspect]
  9. CAFFEINE [Suspect]
  10. ACETAMINOPHEN [Suspect]
  11. NORTRIPTYLINE HCL [Suspect]
  12. ROHYPNOL [Suspect]
     Indication: DEPRESSION
  13. LENDORMIN [Suspect]
     Indication: DEPRESSION
  14. RIZE [Suspect]
  15. DEPAS [Suspect]
  16. PZC [Suspect]
  17. SURMONTIL [Suspect]
  18. DEPROMEL [Suspect]
  19. MEILAX [Suspect]
  20. SEDIEL [Suspect]

REACTIONS (11)
  - CARDIO-RESPIRATORY ARREST [None]
  - COMPLETED SUICIDE [None]
  - HEPATIC NECROSIS [None]
  - HEPATOMEGALY [None]
  - MULTIPLE DRUG OVERDOSE [None]
  - PULMONARY ALVEOLAR HAEMORRHAGE [None]
  - PULMONARY CONGESTION [None]
  - PULMONARY OEDEMA [None]
  - SKIN LACERATION [None]
  - THERMOMETRY ABNORMAL [None]
  - UNEVALUABLE EVENT [None]
